FAERS Safety Report 16436940 (Version 3)
Quarter: 2019Q4

REPORT INFORMATION
  Report Type: Report from Study
  Country: US (occurrence: US)
  Receive Date: 20190614
  Receipt Date: 20191007
  Transmission Date: 20200122
  Serious: Yes (Death, Hospitalization)
  Sender: FDA-Public Use
  Company Number: US-ACTELION-A-NJ2017-163412

PATIENT
  Age: 73 Year
  Sex: Male
  Weight: 146.49 kg

DRUGS (3)
  1. UPTRAVI [Suspect]
     Active Substance: SELEXIPAG
     Indication: PULMONARY ARTERIAL HYPERTENSION
     Dosage: 800 MCG, BID
     Route: 048
  2. ADEMPAS [Concomitant]
     Active Substance: RIOCIGUAT
  3. OPSUMIT [Suspect]
     Active Substance: MACITENTAN
     Indication: PULMONARY ARTERIAL HYPERTENSION
     Dosage: 10 MG, QD
     Route: 048

REACTIONS (14)
  - Cough [Unknown]
  - Dizziness [Unknown]
  - Loss of consciousness [Unknown]
  - Fluid retention [Unknown]
  - Product dose omission [Unknown]
  - Death [Fatal]
  - Syncope [Unknown]
  - Cardiac failure congestive [Unknown]
  - Heart rate decreased [Unknown]
  - Pneumonia [Unknown]
  - Alpha-1 anti-trypsin deficiency [Unknown]
  - Dyspnoea [Unknown]
  - Inappropriate schedule of product administration [Unknown]
  - Hypotension [Unknown]

NARRATIVE: CASE EVENT DATE: 20190531
